FAERS Safety Report 19769955 (Version 2)
Quarter: 2021Q3

REPORT INFORMATION
  Report Type: Report from Study
  Country: CA (occurrence: CA)
  Receive Date: 20210901
  Receipt Date: 20210929
  Transmission Date: 20211014
  Serious: Yes (Other)
  Sender: FDA-Public Use
  Company Number: CA-JNJFOC-20210853219

PATIENT
  Age: 2 Decade
  Sex: Male

DRUGS (1)
  1. REMICADE [Suspect]
     Active Substance: INFLIXIMAB
     Indication: HIDRADENITIS
     Route: 042
     Dates: start: 20210224

REACTIONS (6)
  - Skin lesion [Not Recovered/Not Resolved]
  - Neck mass [Recovering/Resolving]
  - Thrombosis [Recovering/Resolving]
  - Abdominal discomfort [Recovered/Resolved]
  - Purulent discharge [Recovering/Resolving]
  - Nausea [Recovered/Resolved]

NARRATIVE: CASE EVENT DATE: 2021
